FAERS Safety Report 6266420-8 (Version None)
Quarter: 2009Q3

REPORT INFORMATION
  Report Type: 
  Country: None (occurrence: None)
  Receive Date: 20090713
  Receipt Date: 20090702
  Transmission Date: 20100115
  Serious: Yes (Hospitalization)
  Sender: FDA-Public Use
  Company Number: BR-AVENTIS-200915717GDDC

PATIENT
  Age: 10 Year
  Sex: Female
  Weight: 28.4 kg

DRUGS (4)
  1. LANTUS [Suspect]
     Route: 058
     Dates: start: 20090501, end: 20090501
  2. LANTUS [Suspect]
     Route: 058
     Dates: start: 20090501
  3. APIDRA [Suspect]
     Dosage: DOSE: 3-4
     Route: 058
     Dates: start: 20090501
  4. AUTOPEN 24 [Suspect]
     Dates: start: 20090501

REACTIONS (6)
  - ASTHENIA [None]
  - BRONCHITIS [None]
  - COUGH [None]
  - DEPRESSION [None]
  - DIABETES MELLITUS INADEQUATE CONTROL [None]
  - PRODUCT QUALITY ISSUE [None]
